FAERS Safety Report 23404799 (Version 1)
Quarter: 2024Q1

REPORT INFORMATION
  Report Type: Spontaneous
  Country: US (occurrence: US)
  Receive Date: 20240116
  Receipt Date: 20240116
  Transmission Date: 20240409
  Serious: No
  Sender: FDA-Public Use
  Company Number: US-002147023-NVSC2024US009015

PATIENT
  Sex: Female
  Weight: 78.912 kg

DRUGS (1)
  1. KISQALI [Suspect]
     Active Substance: RIBOCICLIB
     Indication: Breast cancer
     Dosage: 400 MG (1 QD FOR 21 DAYS, 2 TABLETS DAILY FOR 21 DAYS, THEN TAKE 7 DAYS))
     Route: 048

REACTIONS (4)
  - Fatigue [Unknown]
  - White blood cell count decreased [Unknown]
  - Red blood cell count decreased [Unknown]
  - Product dose omission issue [Unknown]
